FAERS Safety Report 6136440-2 (Version None)
Quarter: 2009Q1

REPORT INFORMATION
  Report Type: 
  Country: None (occurrence: None)
  Receive Date: 20090330
  Receipt Date: 20090213
  Transmission Date: 20090719
  Serious: No
  Sender: FDA-Public Use
  Company Number: US-BAUSCH-2009BL000803

PATIENT
  Age: 38 Year
  Sex: Female

DRUGS (7)
  1. OFLOXACIN OTIC SOLUTION 0.3% [Suspect]
     Route: 047
     Dates: start: 20090209, end: 20090212
  2. CEFDINIR [Concomitant]
     Indication: UPPER RESPIRATORY TRACT INFECTION
     Dates: start: 20090209
  3. OMNARIS [Concomitant]
     Indication: SINUS DISORDER
     Dates: start: 20090209
  4. CLARINEX D [Concomitant]
     Indication: HYPERSENSITIVITY
     Dates: start: 20090209
  5. IBUPROFEN [Concomitant]
     Indication: HEADACHE
  6. TYLENOL ^JOHNSON + JOHNSON^ [Concomitant]
     Indication: HEADACHE
  7. SUDAFED S.A. [Concomitant]
     Indication: SINUS DISORDER

REACTIONS (4)
  - DRUG DISPENSING ERROR [None]
  - EYE IRRITATION [None]
  - EYELID MARGIN CRUSTING [None]
  - MEDICATION ERROR [None]
